FAERS Safety Report 19793271 (Version 1)
Quarter: 2021Q3

REPORT INFORMATION
  Report Type: Report from Study
  Country: AT (occurrence: AT)
  Receive Date: 20210906
  Receipt Date: 20210906
  Transmission Date: 20211014
  Serious: Yes (Life-Threatening)
  Sender: FDA-Public Use
  Company Number: AT-ACCORD-237359

PATIENT
  Age: 70 Year
  Sex: Male
  Weight: 94 kg

DRUGS (7)
  1. ATRA [Suspect]
     Active Substance: TRETINOIN
     Indication: ACUTE MYELOID LEUKAEMIA
     Dosage: 120 MG, 1X/DAY
     Dates: start: 20120718
  2. CYTARABINE. [Suspect]
     Active Substance: CYTARABINE
     Indication: ACUTE MYELOID LEUKAEMIA
     Dosage: 205 MG, 1X/DAY
     Dates: start: 20120713
  3. IDARUBICIN/IDARUBICIN HYDROCHLORIDE [Suspect]
     Active Substance: IDARUBICIN HYDROCHLORIDE
     Indication: ACUTE MYELOID LEUKAEMIA
     Dosage: 24 MG, 1X/DAY
     Dates: start: 20120713
  4. ETOPOSIDE. [Suspect]
     Active Substance: ETOPOSIDE
     Indication: ACUTE MYELOID LEUKAEMIA
     Dosage: 205 MG, 1X/DAY
     Dates: start: 20120713
  5. COLIDIMIN [Concomitant]
     Active Substance: RIFAXIMIN
     Dosage: 600 MG, 1X/DAY
     Route: 042
     Dates: start: 20120720
  6. TAZONAM [Concomitant]
     Active Substance: TAZOBACTAM
     Dosage: 13.5 MG, 1X/DAY
     Route: 042
     Dates: start: 20120718
  7. VFEND [Concomitant]
     Active Substance: VORICONAZOLE
     Dosage: 800 MG, 1X/DAY
     Route: 048
     Dates: start: 20120720

REACTIONS (1)
  - Respiratory failure [Recovered/Resolved]

NARRATIVE: CASE EVENT DATE: 20120720
